FAERS Safety Report 10557464 (Version 6)
Quarter: 2014Q4

REPORT INFORMATION
  Report Type: Spontaneous
  Country: JP (occurrence: JP)
  Receive Date: 20141031
  Receipt Date: 20141121
  Transmission Date: 20150529
  Serious: Yes (Death, Hospitalization, Other)
  Sender: FDA-Public Use
  Company Number: JP-B.I. PHARMACEUTICALS,INC./RIDGEFIELD-2014-BI-52175NB

PATIENT
  Age: 71 Year
  Sex: Female
  Weight: 48.6 kg

DRUGS (6)
  1. HALFDIGOXIN [Concomitant]
     Active Substance: DIGOXIN
     Indication: ATRIAL FIBRILLATION
     Dosage: 0.125 MG
     Route: 048
     Dates: start: 20131126, end: 20140117
  2. NEXIUM [Concomitant]
     Active Substance: ESOMEPRAZOLE MAGNESIUM
     Indication: GASTROOESOPHAGEAL REFLUX DISEASE
     Dosage: 20 MG
     Route: 048
     Dates: start: 20140212, end: 20140511
  3. PRAZAXA [Suspect]
     Active Substance: DABIGATRAN ETEXILATE MESYLATE
     Indication: ATRIAL FIBRILLATION
     Dosage: 220 MG
     Route: 048
     Dates: start: 20131126, end: 201406
  4. MAINTATE [Suspect]
     Active Substance: BISOPROLOL FUMARATE
     Indication: ATRIAL FIBRILLATION
     Dosage: 5 MG
     Route: 048
     Dates: start: 20131227, end: 201405
  5. COVERSYL [Concomitant]
     Active Substance: PERINDOPRIL
     Indication: HYPERTENSION
     Dosage: 4 MG
     Route: 048
     Dates: start: 201405
  6. NORVASC [Concomitant]
     Active Substance: AMLODIPINE BESYLATE
     Indication: HYPERTENSION
     Dosage: 5 MG
     Route: 048
     Dates: start: 20030115, end: 201404

REACTIONS (8)
  - Atrial fibrillation [Unknown]
  - Gastrooesophageal reflux disease [Not Recovered/Not Resolved]
  - Aortic dissection [Fatal]
  - Ventricular tachycardia [Unknown]
  - Sleep apnoea syndrome [Unknown]
  - Cardiac failure chronic [Fatal]
  - Haemorrhage [Fatal]
  - Cardiac failure [Unknown]

NARRATIVE: CASE EVENT DATE: 20140212
